FAERS Safety Report 9830079 (Version 1)
Quarter: 2014Q1

REPORT INFORMATION
  Report Type: Spontaneous
  Country: IN (occurrence: IN)
  Receive Date: 20140120
  Receipt Date: 20140120
  Transmission Date: 20141002
  Serious: Yes (Other)
  Sender: FDA-Public Use
  Company Number: IN-SA-2014SA003523

PATIENT
  Sex: 0

DRUGS (1)
  1. STILNOCT [Suspect]
     Indication: INSOMNIA
     Route: 065

REACTIONS (1)
  - Myocardial infarction [Unknown]
